FAERS Safety Report 6037552-4 (Version None)
Quarter: 2009Q1

REPORT INFORMATION
  Report Type: 
  Country: None (occurrence: None)
  Receive Date: 20090113
  Receipt Date: 20090101
  Transmission Date: 20090719
  Serious: Yes (Hospitalization, Other)
  Sender: FDA-Public Use
  Company Number: CHPA2009US00463

PATIENT
  Sex: Female

DRUGS (2)
  1. BENEFIBER W/WHEAT DEXTRIN (NCH) (WHEAT DEXTRIN) POWDER [Suspect]
     Dosage: ORAL
     Route: 048
     Dates: end: 20090101
  2. BENEFIBER SUPPLEMENT SUGAR FREE (NCH ) (GUAR GUM) POWDER [Suspect]
     Dosage: ORAL
     Route: 048

REACTIONS (3)
  - CONSTIPATION [None]
  - INTESTINAL OBSTRUCTION [None]
  - WRONG TECHNIQUE IN DRUG USAGE PROCESS [None]
